FAERS Safety Report 7821224-7 (Version None)
Quarter: 2011Q4

REPORT INFORMATION
  Report Type: 
  Country: None (occurrence: None)
  Receive Date: 20111018
  Receipt Date: 20111012
  Transmission Date: 20120403
  Serious: Yes (Hospitalization)
  Sender: FDA-Public Use
  Company Number: FR-SANOFI-AVENTIS-2011SA066732

PATIENT
  Age: 69 Year
  Sex: Male

DRUGS (1)
  1. RIFATER [Suspect]
     Indication: TUBERCULOSIS
     Dosage: DOSE:6 UNIT(S)
     Route: 048
     Dates: start: 20110607, end: 20110807

REACTIONS (1)
  - PURPURA [None]
